FAERS Safety Report 18242741 (Version 1)
Quarter: 2020Q3

REPORT INFORMATION
  Report Type: Spontaneous
  Country: GB (occurrence: GB)
  Receive Date: 20200908
  Receipt Date: 20200908
  Transmission Date: 20201103
  Serious: Yes (Life-Threatening, Hospitalization, Disabling, Other)
  Sender: FDA-Public Use
  Company Number: GB-SHIRE-GB202028513

PATIENT

DRUGS (1)
  1. 476 (MESALAZINE/MESALAMINE) [Suspect]
     Active Substance: MESALAMINE
     Indication: COLITIS ULCERATIVE
     Route: 048

REACTIONS (2)
  - Renal impairment [Recovered/Resolved with Sequelae]
  - Product prescribing error [Unknown]

NARRATIVE: CASE EVENT DATE: 2004
